FAERS Safety Report 6269266-X (Version None)
Quarter: 2009Q3

REPORT INFORMATION
  Report Type: 
  Country: None (occurrence: None)
  Receive Date: 20090713
  Receipt Date: 20090702
  Transmission Date: 20100115
  Serious: Yes (Death, Other)
  Sender: FDA-Public Use
  Company Number: GXKR2009IT07590

PATIENT
  Age: 44 Year
  Sex: Female

DRUGS (1)
  1. DEXAMETHASONE [Suspect]
     Indication: ACUTE DISSEMINATED ENCEPHALOMYELITIS
     Dosage: 24 MG/DAY, INTRAVENOUS; TAPERED TO 8 MG/DAY OVER 30 DAYS, INTRAVENOUS
     Route: 042

REACTIONS (22)
  - ABSCESS DRAINAGE [None]
  - APHASIA [None]
  - APRAXIA [None]
  - ASPERGILLOSIS [None]
  - BLOOD POTASSIUM DECREASED [None]
  - BLOOD SODIUM DECREASED [None]
  - BRAIN ABSCESS [None]
  - BRAIN OEDEMA [None]
  - COMA [None]
  - CONFUSIONAL STATE [None]
  - DISORIENTATION [None]
  - EXTENSOR PLANTAR RESPONSE [None]
  - GENERAL PHYSICAL HEALTH DETERIORATION [None]
  - HEMIPLEGIA [None]
  - HYPERGLYCAEMIA [None]
  - HYPERTONIA [None]
  - IMMUNE SYSTEM DISORDER [None]
  - MENTAL IMPAIRMENT [None]
  - MOTOR DYSFUNCTION [None]
  - OESOPHAGEAL CANDIDIASIS [None]
  - OPPORTUNISTIC INFECTION [None]
  - PYREXIA [None]
